FAERS Safety Report 17283477 (Version 3)
Quarter: 2021Q1

REPORT INFORMATION
  Report Type: Spontaneous
  Country: JP (occurrence: JP)
  Receive Date: 20200117
  Receipt Date: 20210330
  Transmission Date: 20210419
  Serious: Yes (Other)
  Sender: FDA-Public Use
  Company Number: PHJP2019JP012389

PATIENT
  Age: 37 Year
  Sex: Female

DRUGS (16)
  1. PASIREOTIDE. [Suspect]
     Active Substance: PASIREOTIDE
     Dosage: 20 MG
     Route: 030
     Dates: start: 20190123
  2. PASIREOTIDE. [Suspect]
     Active Substance: PASIREOTIDE
     Dosage: 20 MG
     Route: 030
     Dates: start: 20190327, end: 20190327
  3. ONEALFA [Concomitant]
     Active Substance: ALFACALCIDOL
     Indication: OSTEOPOROSIS
     Dosage: 0.25 MG
     Route: 048
  4. ACTONEL [Concomitant]
     Active Substance: RISEDRONATE SODIUM
     Indication: OSTEOPOROSIS
     Dosage: 2.5 MG
     Route: 048
  5. PASIREOTIDE. [Suspect]
     Active Substance: PASIREOTIDE
     Dosage: 20 MG
     Route: 030
     Dates: start: 20190227
  6. CRESTOR [Concomitant]
     Active Substance: ROSUVASTATIN CALCIUM
     Indication: PRODUCT USED FOR UNKNOWN INDICATION
     Dosage: 2.5 MG
     Route: 048
  7. METOPIRON [Concomitant]
     Active Substance: METYRAPONE
     Indication: PITUITARY-DEPENDENT CUSHING^S SYNDROME
     Dosage: 500 MG
     Route: 048
     Dates: end: 20190227
  8. METOPIRON [Concomitant]
     Active Substance: METYRAPONE
     Dosage: 500 MG
     Route: 048
     Dates: start: 20190327
  9. NORVASC [Concomitant]
     Active Substance: AMLODIPINE BESYLATE
     Indication: HYPERTENSION
     Dosage: 2.5 MG
     Route: 048
  10. PASIREOTIDE. [Suspect]
     Active Substance: PASIREOTIDE
     Dosage: 10 MG
     Route: 030
     Dates: start: 20181226
  11. TENELIA [Concomitant]
     Active Substance: TENELIGLIPTIN
     Indication: DIABETES MELLITUS
     Dosage: 20 MG
     Route: 048
     Dates: end: 20181226
  12. GLUBES [Concomitant]
     Active Substance: MITIGLINIDE CALCIUM HYDRATE\VOGLIBOSE
     Indication: DIABETES MELLITUS
     Dosage: 3 DF
     Route: 048
     Dates: start: 20190327, end: 20190724
  13. CANAGLIFLOZIN [Concomitant]
     Active Substance: CANAGLIFLOZIN
     Indication: DIABETES MELLITUS
     Dosage: 1 DF
     Route: 048
     Dates: end: 20181216
  14. ALDACTONE?A [Concomitant]
     Active Substance: SPIRONOLACTONE
     Indication: HYPERTENSION
     Dosage: 25 MG
     Route: 048
  15. PASIREOTIDE. [Suspect]
     Active Substance: PASIREOTIDE
     Indication: PITUITARY-DEPENDENT CUSHING^S SYNDROME
     Dosage: 10 MG
     Route: 030
     Dates: start: 20181128
  16. TAKECAB [Concomitant]
     Active Substance: VONOPRAZAN FUMARATE
     Indication: PRODUCT USED FOR UNKNOWN INDICATION
     Dosage: 20 MG
     Route: 048

REACTIONS (1)
  - Hyperglycaemia [Recovering/Resolving]

NARRATIVE: CASE EVENT DATE: 20190327
